FAERS Safety Report 10550593 (Version 1)
Quarter: 2014Q4

REPORT INFORMATION
  Report Type: Spontaneous
  Country: US (occurrence: US)
  Receive Date: 20141029
  Receipt Date: 20141029
  Transmission Date: 20150529
  Serious: No
  Sender: FDA-Public Use
  Company Number: US-BIOGENIDEC-2014BI112600

PATIENT
  Age: 62 Year
  Sex: Female

DRUGS (2)
  1. AVONEX [Suspect]
     Active Substance: INTERFERON BETA-1A
     Indication: MULTIPLE SCLEROSIS
     Route: 030
     Dates: start: 20050506
  2. BETASERON [Concomitant]
     Active Substance: INTERFERON BETA-1B

REACTIONS (3)
  - Rheumatoid arthritis [Unknown]
  - Hepatic enzyme abnormal [Unknown]
  - Lyme disease [Unknown]

NARRATIVE: CASE EVENT DATE: 2012
